FAERS Safety Report 16648964 (Version 9)
Quarter: 2019Q3

REPORT INFORMATION
  Report Type: Report from Study
  Country: KR (occurrence: KR)
  Receive Date: 20190730
  Receipt Date: 20190829
  Transmission Date: 20191004
  Serious: Yes (Hospitalization)
  Sender: FDA-Public Use
  Company Number: KR-EISAI MEDICAL RESEARCH-EC-2019-059009

PATIENT
  Age: 60 Year
  Sex: Female
  Weight: 44.5 kg

DRUGS (11)
  1. LENVATINIB [Suspect]
     Active Substance: LENVATINIB
     Indication: TRIPLE NEGATIVE BREAST CANCER
     Route: 048
     Dates: start: 20190621, end: 20190703
  2. LASIX [Concomitant]
     Active Substance: FUROSEMIDE
     Dates: start: 20190620, end: 20190703
  3. POLYBUTINE [Concomitant]
     Dates: start: 20190524
  4. IRCODON [Concomitant]
     Active Substance: OXYCODONE HYDROCHLORIDE
     Dates: start: 201904, end: 20190703
  5. HYSONE [Concomitant]
     Dates: start: 20190523
  6. MEDILAC-DS [Concomitant]
     Dates: start: 20190524
  7. URSA TABLETS [Concomitant]
     Dates: start: 20190529
  8. PEMBROLIZUMAB. [Suspect]
     Active Substance: PEMBROLIZUMAB
     Indication: TRIPLE NEGATIVE BREAST CANCER
     Route: 041
     Dates: start: 20190621, end: 20190621
  9. HYSONE [Concomitant]
     Dates: start: 20190523
  10. ALDACTONE [Concomitant]
     Active Substance: SPIRONOLACTONE
     Dates: start: 20190620, end: 20190703
  11. MYPOL [Concomitant]
     Dates: start: 201904, end: 20190703

REACTIONS (2)
  - Pneumothorax [Recovered/Resolved]
  - Pulmonary embolism [Recovered/Resolved with Sequelae]

NARRATIVE: CASE EVENT DATE: 20190704
